FAERS Safety Report 6759478-0 (Version None)
Quarter: 2010Q2

REPORT INFORMATION
  Report Type: 
  Country: None (occurrence: None)
  Receive Date: 20100603
  Receipt Date: 20100521
  Transmission Date: 20101027
  Serious: Yes (Other)
  Sender: FDA-Public Use
  Company Number: 012772

PATIENT
  Age: 23 Year
  Sex: Female

DRUGS (2)
  1. XYZAL [Suspect]
  2. XYLOMETAZOLINE HYDROCHLORIDE (XYLLO MEPHA) [Suspect]

REACTIONS (1)
  - ABDOMINAL PAIN [None]
